FAERS Safety Report 5325275-6 (Version None)
Quarter: 2007Q2

REPORT INFORMATION
  Report Type: 
  Country: None (occurrence: None)
  Receive Date: 20070515
  Receipt Date: 20070504
  Transmission Date: 20071010
  Serious: No
  Sender: FDA-Public Use
  Company Number: FR-ELI_LILLY_AND_COMPANY-FR200701005313

PATIENT
  Age: 75 Year
  Sex: Female
  Weight: 42 kg

DRUGS (6)
  1. FORTEO [Suspect]
     Indication: OSTEOPOROSIS
     Dosage: 20 UG, DAILY (1/D)
     Route: 058
     Dates: start: 20041001, end: 20060501
  2. FENOFIBRATE [Concomitant]
     Indication: HYPERCHOLESTEROLAEMIA
  3. CARBOSYLANE [Concomitant]
     Indication: HIATUS HERNIA
  4. TRANSIPEG [Concomitant]
  5. PROTELOS [Concomitant]
     Indication: OSTEOPOROSIS
     Dosage: 1 D/F, DAILY (1/D)
     Route: 048
     Dates: start: 20060501, end: 20070101
  6. DEDROGYL [Concomitant]
     Indication: OSTEOPOROSIS
     Dosage: 4 GTT, DAILY (1/D)
     Route: 048
     Dates: start: 20060501

REACTIONS (1)
  - STRESS FRACTURE [None]
